FAERS Safety Report 18963525 (Version 1)
Quarter: 2021Q1

REPORT INFORMATION
  Report Type: Spontaneous
  Country: JP (occurrence: JP)
  Receive Date: 20210303
  Receipt Date: 20210303
  Transmission Date: 20210420
  Serious: Yes (Death, Other)
  Sender: FDA-Public Use
  Company Number: JP-009507513-2102JPN002588J

PATIENT
  Age: 81 Year
  Sex: Male

DRUGS (1)
  1. KEYTRUDA [Suspect]
     Active Substance: PEMBROLIZUMAB
     Indication: LUNG SQUAMOUS CELL CARCINOMA STAGE II
     Dosage: 200 MILLIGRAM, Q3W
     Route: 041
     Dates: start: 20191216, end: 20201221

REACTIONS (3)
  - Movement disorder [Unknown]
  - Myocardial infarction [Unknown]
  - Cardiac failure [Fatal]

NARRATIVE: CASE EVENT DATE: 20201215
